FAERS Safety Report 16001686 (Version 1)
Quarter: 2019Q1

REPORT INFORMATION
  Report Type: Spontaneous
  Country: US (occurrence: US)
  Receive Date: 20190225
  Receipt Date: 20190225
  Transmission Date: 20190418
  Serious: No
  Sender: FDA-Public Use
  Company Number: US-PFIZER INC-2019021442

PATIENT
  Age: 64 Year
  Sex: Female
  Weight: 73 kg

DRUGS (2)
  1. GENOTROPIN [Suspect]
     Active Substance: SOMATROPIN
     Indication: HYPOPITUITARISM
     Dosage: 4 IU, 1X/DAY, [TAKE 4 UNITS A DAY]
  2. GENOTROPIN [Suspect]
     Active Substance: SOMATROPIN
     Dosage: 0.5 MG, DAILY
     Dates: start: 20171213

REACTIONS (12)
  - Mean platelet volume increased [Unknown]
  - Blood thyroid stimulating hormone decreased [Unknown]
  - Blood glucose increased [Unknown]
  - High density lipoprotein decreased [Unknown]
  - Haemoglobin decreased [Unknown]
  - Haematocrit decreased [Unknown]
  - Blood creatinine decreased [Unknown]
  - Vitamin B12 increased [Unknown]
  - Blood triglycerides increased [Unknown]
  - Dizziness postural [Unknown]
  - Fatigue [Unknown]
  - Thyroxine free increased [Unknown]

NARRATIVE: CASE EVENT DATE: 20190102
